FAERS Safety Report 25343713 (Version 1)
Quarter: 2025Q2

REPORT INFORMATION
  Report Type: Report from Study
  Country: US (occurrence: US)
  Receive Date: 20250521
  Receipt Date: 20250521
  Transmission Date: 20250716
  Serious: Yes (Other)
  Sender: ALEXION PHARMACEUTICALS
  Company Number: US-AstraZeneca-CH-00873116A

PATIENT
  Age: 83 Year

DRUGS (1)
  1. OSIMERTINIB [Suspect]
     Active Substance: OSIMERTINIB
     Indication: Lung carcinoma cell type unspecified stage 0
     Dosage: 80 MILLIGRAM, QD

REACTIONS (7)
  - Fall [Unknown]
  - Shoulder fracture [Unknown]
  - Skin lesion [Unknown]
  - Illness [Unknown]
  - Renal disorder [Unknown]
  - Palpitations [Unknown]
  - Impaired healing [Unknown]
